FAERS Safety Report 5907862-7 (Version None)
Quarter: 2008Q4

REPORT INFORMATION
  Report Type: 
  Country: None (occurrence: None)
  Receive Date: 20081003
  Receipt Date: 20080922
  Transmission Date: 20090506
  Serious: Yes (Hospitalization)
  Sender: FDA-Public Use
  Company Number: AU-PFIZER INC-2008074523

PATIENT
  Sex: Male

DRUGS (16)
  1. CHANTIX [Suspect]
     Route: 048
     Dates: start: 20080823, end: 20080831
  2. AMIODARONE [Concomitant]
     Route: 048
  3. CADUET [Concomitant]
     Dosage: TEXT:10MG/40MG
     Route: 048
  4. CARTIA XT [Concomitant]
     Route: 048
  5. FRUSEMIDE [Concomitant]
     Route: 048
  6. IMDUR [Concomitant]
     Route: 048
  7. MONODUR [Concomitant]
  8. PLAVIX [Concomitant]
     Route: 048
  9. RAMACE [Concomitant]
     Route: 048
  10. ALVESCO [Concomitant]
     Route: 055
  11. DEXAMETHASONE [Concomitant]
     Route: 048
  12. DILATREND [Concomitant]
     Route: 048
  13. NITROLINGUAL PUMPSPRAY [Concomitant]
     Route: 060
  14. ALBUTEROL [Concomitant]
     Route: 055
  15. SOMAC [Concomitant]
     Route: 048
  16. SPIRIVA [Concomitant]
     Route: 055

REACTIONS (6)
  - CHEST DISCOMFORT [None]
  - DIZZINESS [None]
  - DYSPNOEA [None]
  - HEART RATE INCREASED [None]
  - PALPITATIONS [None]
  - TACHYCARDIA [None]
